FAERS Safety Report 16643086 (Version 1)
Quarter: 2019Q3

REPORT INFORMATION
  Report Type: Spontaneous
  Country: US (occurrence: US)
  Receive Date: 20190729
  Receipt Date: 20190729
  Transmission Date: 20191004
  Serious: Yes (Other)
  Sender: FDA-Public Use
  Company Number: US-HORIZON-VIM-0298-2019

PATIENT
  Age: 62 Year
  Sex: Female

DRUGS (2)
  1. VIMOVO [Suspect]
     Active Substance: ESOMEPRAZOLE MAGNESIUM\NAPROXEN
     Indication: PRODUCT USED FOR UNKNOWN INDICATION
     Dosage: 1 TAB BID X 5 DAYS, THEN PRN
     Route: 048
     Dates: end: 20190722
  2. PENNSAID [Suspect]
     Active Substance: DICLOFENAC SODIUM

REACTIONS (3)
  - Abdominal pain upper [Unknown]
  - Haemorrhage [Unknown]
  - Off label use [Recovered/Resolved]
